FAERS Safety Report 4292087-4 (Version None)
Quarter: 2004Q1

REPORT INFORMATION
  Report Type: 
  Country: None (occurrence: None)
  Receive Date: 20040126
  Receipt Date: 20030918
  Transmission Date: 20041129
  Serious: No
  Sender: FDA-Public Use
  Company Number: USA030946087

PATIENT
  Age: 65 Year
  Sex: Female

DRUGS (3)
  1. FORTEO [Suspect]
     Indication: OSTEOPOROSIS
     Dates: start: 20030827
  2. ALLEGRA (FEXOFENADNIE HYDROCHLORIDE) [Concomitant]
  3. TAGAMET [Concomitant]

REACTIONS (4)
  - INJECTION SITE HAEMORRHAGE [None]
  - NOCTURIA [None]
  - POLYDIPSIA [None]
  - THIRST [None]
